FAERS Safety Report 16768626 (Version 1)
Quarter: 2019Q3

REPORT INFORMATION
  Report Type: Spontaneous
  Country: US (occurrence: US)
  Receive Date: 20190903
  Receipt Date: 20190903
  Transmission Date: 20191005
  Serious: Yes (Other)
  Sender: FDA-Public Use
  Company Number: US-NOVOPROD-681336

PATIENT
  Sex: Female

DRUGS (3)
  1. NOVOLIN N [Suspect]
     Active Substance: INSULIN HUMAN
     Indication: TYPE 2 DIABETES MELLITUS
     Dosage: 20 UNITS HS
     Route: 058
     Dates: start: 2018
  2. NOVOLIN R [Suspect]
     Active Substance: INSULIN HUMAN
     Indication: BLOOD GLUCOSE INCREASED
     Dosage: INCREASED TO 8 AND 10-12 UNITS BEFORE MEAL
     Route: 058
  3. NOVOLIN R [Suspect]
     Active Substance: INSULIN HUMAN
     Indication: TYPE 2 DIABETES MELLITUS
     Dosage: 3-5 UNITS BEFORE MEALS
     Route: 058
     Dates: start: 201903

REACTIONS (6)
  - Incorrect product administration duration [Unknown]
  - Blood glucose decreased [Recovered/Resolved]
  - Gastrointestinal sounds abnormal [Unknown]
  - Blood glucose increased [Recovered/Resolved]
  - Gastrointestinal polyp [Recovered/Resolved]
  - Product use complaint [Unknown]

NARRATIVE: CASE EVENT DATE: 2019
